FAERS Safety Report 19099559 (Version 1)
Quarter: 2021Q2

REPORT INFORMATION
  Report Type: Other
  Country: FR (occurrence: FR)
  Receive Date: 20210406
  Receipt Date: 20210406
  Transmission Date: 20210717
  Serious: Yes (Hospitalization)
  Sender: FDA-Public Use
  Company Number: FR-VALIDUS PHARMACEUTICALS LLC-FR-2021VAL000643

PATIENT
  Sex: Female
  Weight: 31 kg

DRUGS (1)
  1. FUROSEMIDE. [Suspect]
     Active Substance: FUROSEMIDE
     Indication: POLYURIA
     Dosage: 3 ? 4/J
     Route: 048
     Dates: start: 2008, end: 20171027

REACTIONS (4)
  - Gout [Recovered/Resolved with Sequelae]
  - Gout [Recovered/Resolved]
  - Off label use [Unknown]
  - Gouty tophus [Recovered/Resolved with Sequelae]

NARRATIVE: CASE EVENT DATE: 2008
